FAERS Safety Report 7037438-2 (Version None)
Quarter: 2010Q4

REPORT INFORMATION
  Report Type: 
  Country: None (occurrence: None)
  Receive Date: 20101011
  Receipt Date: 20100930
  Transmission Date: 20110411
  Serious: Yes (Hospitalization, Other)
  Sender: FDA-Public Use
  Company Number: FR-BAXTER-2010BH024854

PATIENT
  Age: 93 Year
  Sex: Female
  Weight: 49 kg

DRUGS (32)
  1. FEIBA [Suspect]
     Indication: FACTOR VIII DEFICIENCY
     Route: 065
     Dates: start: 20091201, end: 20091218
  2. FEIBA [Suspect]
     Indication: FACTOR VIII INHIBITION
     Route: 065
     Dates: start: 20091201, end: 20091218
  3. FEIBA [Suspect]
     Route: 065
     Dates: start: 20091201, end: 20091218
  4. FEIBA [Suspect]
     Route: 065
     Dates: start: 20091201, end: 20091218
  5. FEIBA [Suspect]
     Route: 065
     Dates: start: 20091201, end: 20091218
  6. FEIBA [Suspect]
     Route: 065
     Dates: start: 20091201, end: 20091218
  7. FEIBA [Suspect]
     Route: 065
     Dates: start: 20091219, end: 20091219
  8. FEIBA [Suspect]
     Route: 065
     Dates: start: 20091219, end: 20091219
  9. FEIBA [Suspect]
     Route: 065
     Dates: start: 20091222, end: 20091223
  10. FEIBA [Suspect]
     Route: 065
     Dates: start: 20091222, end: 20091223
  11. FEIBA [Suspect]
     Route: 065
     Dates: start: 20100111, end: 20100113
  12. FEIBA [Suspect]
     Route: 065
     Dates: start: 20100111, end: 20100113
  13. RED BLOOD CELLS [Concomitant]
     Indication: ANAEMIA
     Route: 042
     Dates: start: 20091201, end: 20091211
  14. RISPERDAL [Concomitant]
     Indication: DEPRESSION
     Route: 048
  15. STABLON [Concomitant]
     Indication: DEPRESSION
     Route: 048
     Dates: start: 20091201
  16. TEMESTA [Concomitant]
     Indication: SLEEP DISORDER
     Route: 048
  17. DOLIPRANE [Concomitant]
     Indication: PAIN
     Route: 048
     Dates: start: 20091218
  18. ROCEPHIN [Concomitant]
     Indication: INFECTION PROPHYLAXIS
     Route: 042
     Dates: start: 20091101, end: 20091202
  19. CORTANCYL [Concomitant]
     Indication: FACTOR VIII INHIBITION
     Route: 048
     Dates: start: 20091201, end: 20100113
  20. CACIT D3 [Concomitant]
     Indication: FACTOR VIII INHIBITION
     Route: 048
     Dates: start: 20091201, end: 20091229
  21. ACTONEL [Concomitant]
     Indication: FACTOR VIII INHIBITION
     Route: 048
     Dates: start: 20091205, end: 20091229
  22. TRAMADOL [Concomitant]
     Indication: PAIN
     Route: 048
     Dates: start: 20091130, end: 20091214
  23. LASIX [Concomitant]
     Indication: TRANSFUSION
     Route: 042
     Dates: start: 20091201, end: 20091201
  24. KAYEXALATE [Concomitant]
     Indication: HYPERKALAEMIA
     Route: 048
     Dates: start: 20091202, end: 20091202
  25. RITUXIMAB [Concomitant]
     Indication: FACTOR VIII INHIBITION
     Route: 042
     Dates: start: 20091203, end: 20100113
  26. PARACETAMOL [Concomitant]
     Indication: PREMEDICATION
     Route: 048
     Dates: start: 20091203, end: 20100113
  27. DEXCHLORPHENIRAMINE MALEATE [Concomitant]
     Indication: PREMEDICATION
     Dates: start: 20091203, end: 20100113
  28. METHYLPREDNISOLONE [Concomitant]
     Indication: PREMEDICATION
     Route: 042
     Dates: start: 20091203, end: 20100113
  29. INIPOMP [Concomitant]
     Indication: PROPHYLAXIS
     Route: 048
     Dates: start: 20091209
  30. TRANXENE [Concomitant]
     Indication: AGITATION
     Route: 048
     Dates: start: 20091209, end: 20100113
  31. DOLIPRANE [Concomitant]
     Route: 048
     Dates: start: 20091219, end: 20091220
  32. DUPHALAC /NET/ [Concomitant]
     Indication: CONSTIPATION
     Route: 048
     Dates: start: 20091220, end: 20091220

REACTIONS (7)
  - DEVICE RELATED INFECTION [None]
  - DYSPHONIA [None]
  - ENTEROBACTER INFECTION [None]
  - FALL [None]
  - HEAD INJURY [None]
  - HIP FRACTURE [None]
  - LEUKOCYTOSIS [None]
